FAERS Safety Report 5644941-6 (Version None)
Quarter: 2008Q1

REPORT INFORMATION
  Report Type: 
  Country: None (occurrence: None)
  Receive Date: 20080229
  Receipt Date: 20071102
  Transmission Date: 20080703
  Serious: No
  Sender: FDA-Public Use
  Company Number: A0693034A

PATIENT

DRUGS (1)
  1. VALTREX [Suspect]
     Indication: HERPES VIRUS INFECTION
     Dosage: 4G SEE DOSAGE TEXT
     Route: 048

REACTIONS (1)
  - INCORRECT DOSE ADMINISTERED [None]
